FAERS Safety Report 8345808-5 (Version None)
Quarter: 2012Q2

REPORT INFORMATION
  Report Type: 
  Country: None (occurrence: None)
  Receive Date: 20120509
  Receipt Date: 20120425
  Transmission Date: 20120825
  Serious: Yes (Death, Life-Threatening, Hospitalization)
  Sender: FDA-Public Use
  Company Number: GB-RANBAXY-2012R1-55853

PATIENT
  Age: 49 Year
  Sex: Female
  Weight: 70 kg

DRUGS (1)
  1. MINOCYCLINE HCL [Suspect]
     Indication: HIDRADENITIS
     Dosage: UNK
     Route: 048
     Dates: start: 20120113, end: 20120220

REACTIONS (1)
  - HEPATITIS [None]
